FAERS Safety Report 16246288 (Version 1)
Quarter: 2019Q2

REPORT INFORMATION
  Report Type: Spontaneous
  Country: US (occurrence: US)
  Receive Date: 20190426
  Receipt Date: 20190426
  Transmission Date: 20190711
  Serious: No
  Sender: FDA-Public Use
  Company Number: US-009507513-1903USA012676

PATIENT
  Age: 68 Year
  Sex: Male

DRUGS (2)
  1. REMERON [Suspect]
     Active Substance: MIRTAZAPINE
     Indication: JC VIRUS INFECTION
     Route: 048
  2. EVEROLIMUS. [Concomitant]
     Active Substance: EVEROLIMUS
     Indication: JC VIRUS INFECTION

REACTIONS (1)
  - Product use in unapproved indication [Unknown]
